FAERS Safety Report 16341879 (Version 1)
Quarter: 2019Q2

REPORT INFORMATION
  Report Type: Spontaneous
  Country: US (occurrence: US)
  Receive Date: 20190522
  Receipt Date: 20190522
  Transmission Date: 20190711
  Serious: Yes (Hospitalization)
  Sender: FDA-Public Use
  Company Number: US-BRISTOL-MYERS SQUIBB COMPANY-BMS-2019-046791

PATIENT
  Sex: Female
  Weight: 63.49 kg

DRUGS (1)
  1. ORENCIA [Suspect]
     Active Substance: ABATACEPT
     Indication: RHEUMATOID ARTHRITIS
     Dosage: 125 MILLIGRAM, ONCE A WEEK AS DIRECTED
     Route: 058
     Dates: start: 201904

REACTIONS (3)
  - Nausea [Unknown]
  - Viral infection [Unknown]
  - Vomiting [Unknown]
